FAERS Safety Report 7373986-3 (Version None)
Quarter: 2011Q1

REPORT INFORMATION
  Report Type: 
  Country: None (occurrence: None)
  Receive Date: 20110325
  Receipt Date: 20110324
  Transmission Date: 20110831
  Serious: No
  Sender: FDA-Public Use
  Company Number: US-PFIZER INC-US-WYE-H17668510

PATIENT
  Sex: Female
  Weight: 80.7 kg

DRUGS (9)
  1. NEURONTIN [Concomitant]
  2. CHANTIX [Suspect]
     Indication: EX-TOBACCO USER
     Dosage: 1 MG, 2X/DAY
     Route: 048
     Dates: start: 20100101, end: 20100915
  3. CHANTIX [Suspect]
     Dosage: 0.5 MG, UNSPECIFIED FREQUENCY
     Route: 065
     Dates: start: 20100701, end: 20100101
  4. MULTI-VITAMINS [Concomitant]
  5. ACETAMINOPHEN [Concomitant]
  6. PROTONIX [Suspect]
     Indication: GASTROOESOPHAGEAL REFLUX DISEASE
     Dosage: 40 MG, 2X/DAY
     Route: 048
  7. LOPERAMIDE HYDROCHLORIDE [Suspect]
     Indication: IRRITABLE BOWEL SYNDROME
     Dosage: 2 MG, 2X/DAY
     Route: 048
  8. OXYCODONE [Concomitant]
  9. SEROQUEL [Concomitant]

REACTIONS (4)
  - DRUG INTERACTION [None]
  - DIARRHOEA [None]
  - DRUG EFFECT DECREASED [None]
  - ABDOMINAL PAIN UPPER [None]
